FAERS Safety Report 8310555-2 (Version None)
Quarter: 2012Q2

REPORT INFORMATION
  Report Type: 
  Country: None (occurrence: None)
  Receive Date: 20120425
  Receipt Date: 20120418
  Transmission Date: 20120825
  Serious: Yes (Life-Threatening, Hospitalization)
  Sender: FDA-Public Use
  Company Number: FR-ROCHE-1057578

PATIENT
  Sex: Male

DRUGS (6)
  1. ATROVENT [Concomitant]
  2. VENTOLIN [Concomitant]
  3. XOLAIR [Suspect]
     Indication: ASTHMA
     Dates: start: 20080926, end: 20120307
  4. BRICANYL [Concomitant]
  5. SYMBICORT [Concomitant]
  6. OXEOL [Concomitant]

REACTIONS (3)
  - CARDIAC FAILURE [None]
  - SPLENIC INFARCTION [None]
  - PULMONARY EMBOLISM [None]
